FAERS Safety Report 10033978 (Version 1)
Quarter: 2014Q1

REPORT INFORMATION
  Report Type: Spontaneous
  Country: US (occurrence: None)
  Receive Date: 20140324
  Receipt Date: 20140324
  Transmission Date: 20141002
  Serious: Yes (Other)
  Sender: FDA-Public Use
  Company Number: None

PATIENT
  Age: 18 Year
  Sex: Female
  Weight: 65.77 kg

DRUGS (1)
  1. THINOGENICS [Suspect]
     Indication: WEIGHT CONTROL
     Dates: start: 20140316, end: 20140321

REACTIONS (2)
  - Renal disorder [None]
  - Pain [None]
